FAERS Safety Report 7979763-4 (Version None)
Quarter: 2011Q4

REPORT INFORMATION
  Report Type: 
  Country: None (occurrence: None)
  Receive Date: 20111214
  Receipt Date: 20111212
  Transmission Date: 20120403
  Serious: Yes (Other)
  Sender: FDA-Public Use
  Company Number: CA-ROCHE-1014207

PATIENT
  Sex: Male
  Weight: 94.886 kg

DRUGS (7)
  1. PROCHLORPERAZINE [Concomitant]
  2. ACETAMINOPHEN [Concomitant]
     Route: 048
     Dates: start: 20111130, end: 20111130
  3. METHYLPREDNISOLONE [Concomitant]
     Route: 042
     Dates: start: 20111130, end: 20111130
  4. DECADRON [Concomitant]
  5. PANTOPRAZOLE [Concomitant]
  6. DIPHENHYDRAMINE HCL [Concomitant]
     Route: 048
     Dates: start: 20111130, end: 20111130
  7. AVASTIN [Suspect]
     Indication: GLIOBLASTOMA
     Route: 042
     Dates: start: 20111102, end: 20111130

REACTIONS (2)
  - DIABETES MELLITUS [None]
  - WOUND [None]
